FAERS Safety Report 7747822-7 (Version None)
Quarter: 2011Q3

REPORT INFORMATION
  Report Type: 
  Country: None (occurrence: None)
  Receive Date: 20110913
  Receipt Date: 20110829
  Transmission Date: 20111222
  Serious: Yes (Hospitalization)
  Sender: FDA-Public Use
  Company Number: US-BAYER-2011-013491

PATIENT
  Age: 25 Year
  Sex: Female
  Weight: 55.9 kg

DRUGS (5)
  1. YAZ [Suspect]
     Indication: ACNE
     Dosage: UNK
     Dates: start: 20080801, end: 20090201
  2. YASMIN [Suspect]
     Indication: ACNE
     Dosage: UNK
     Dates: start: 20031001, end: 20051101
  3. YASMIN [Suspect]
     Dosage: UNK
     Dates: start: 20061201, end: 20080801
  4. YAZ [Suspect]
     Dosage: UNK
     Dates: start: 20090601, end: 20090701
  5. PREDNISONE [Concomitant]
     Indication: ALLERGY TO CHEMICALS
     Dosage: 10 MG, UNK
     Route: 048
     Dates: start: 20090112, end: 20090207

REACTIONS (3)
  - ANXIETY [None]
  - PULMONARY EMBOLISM [None]
  - EMOTIONAL DISTRESS [None]
